FAERS Safety Report 6677983-2 (Version None)
Quarter: 2010Q2

REPORT INFORMATION
  Report Type: 
  Country: None (occurrence: None)
  Receive Date: 20100412
  Receipt Date: 20100407
  Transmission Date: 20101027
  Serious: Yes (Other)
  Sender: FDA-Public Use
  Company Number: SG-GENENTECH-299384

PATIENT

DRUGS (1)
  1. ACTIVASE [Suspect]
     Indication: RETINAL ARTERY OCCLUSION

REACTIONS (1)
  - TRANSIENT ISCHAEMIC ATTACK [None]
